FAERS Safety Report 13204122 (Version 1)
Quarter: 2017Q1

REPORT INFORMATION
  Report Type: Spontaneous
  Country: US (occurrence: US)
  Receive Date: 20170209
  Receipt Date: 20170209
  Transmission Date: 20170428
  Serious: No
  Sender: FDA-Public Use
  Company Number: US-GLAXOSMITHKLINE-US2017013693

PATIENT
  Sex: Male

DRUGS (1)
  1. NICORETTE FRUIT CHILL [Suspect]
     Active Substance: NICOTINE
     Indication: TOBACCO USER
     Dosage: 2 MG, UNK

REACTIONS (2)
  - Product use issue [Unknown]
  - Medication error [Unknown]
